FAERS Safety Report 6674724-X (Version None)
Quarter: 2010Q2

REPORT INFORMATION
  Report Type: 
  Country: None (occurrence: None)
  Receive Date: 20100409
  Receipt Date: 20100329
  Transmission Date: 20101027
  Serious: Yes (Hospitalization, Other)
  Sender: FDA-Public Use
  Company Number: CA-PFIZER INC-2010039796

PATIENT
  Age: 37 Year
  Sex: Male

DRUGS (13)
  1. CELSENTRI [Suspect]
     Indication: ACQUIRED IMMUNODEFICIENCY SYNDROME
     Dosage: UNK
     Dates: start: 20070101
  2. TRUVADA [Concomitant]
     Dosage: UNK
     Dates: start: 20070101
  3. RALTEGRAVIR [Concomitant]
     Dosage: UNK
     Dates: start: 20070101
  4. ZITHROMAX [Concomitant]
     Dosage: UNK
  5. ETHAMBUTOL [Concomitant]
     Dosage: UNK
  6. RIFABUTIN [Concomitant]
     Dosage: UNK
  7. RIFAMPIN [Concomitant]
     Dosage: UNK
     Route: 042
  8. ALL OTHER THERAPEUTIC PRODUCTS [Concomitant]
     Dosage: UNK
     Route: 042
  9. ALL OTHER THERAPEUTIC PRODUCTS [Concomitant]
     Dosage: UNK
  10. LASIX [Concomitant]
     Dosage: UNK
     Route: 042
  11. ATASOL [Concomitant]
     Dosage: UNK
  12. POTASSIUM [Concomitant]
     Dosage: UNK
  13. GRAVOL TAB [Concomitant]
     Dosage: UNK

REACTIONS (11)
  - CACHEXIA [None]
  - ENANTHEMA [None]
  - ESCHERICHIA SEPSIS [None]
  - GASTROENTERITIS CRYPTOSPORIDIAL [None]
  - HYPOPROTEINAEMIA [None]
  - MYCOBACTERIUM AVIUM COMPLEX INFECTION [None]
  - OEDEMA [None]
  - PSYCHOTIC DISORDER [None]
  - SEPSIS [None]
  - SPLENIC ABSCESS [None]
  - VIROLOGIC FAILURE [None]
